FAERS Safety Report 14974301 (Version 2)
Quarter: 2018Q3

REPORT INFORMATION
  Report Type: Report from Study
  Country: US (occurrence: US)
  Receive Date: 20180605
  Receipt Date: 20180731
  Transmission Date: 20181010
  Serious: Yes (Hospitalization, Other)
  Sender: FDA-Public Use
  Company Number: US-UNITED THERAPEUTICS-UNT-2018-007621

PATIENT
  Sex: Female

DRUGS (1)
  1. TREPROSTINIL SODIUM (IV) [Suspect]
     Active Substance: TREPROSTINIL SODIUM
     Indication: PULMONARY ARTERIAL HYPERTENSION
     Dosage: 0.0663?G/KG, CONTINUING
     Route: 041
     Dates: start: 20070314

REACTIONS (2)
  - Haemoglobin decreased [Recovering/Resolving]
  - Small intestinal haemorrhage [Unknown]

NARRATIVE: CASE EVENT DATE: 201803
